FAERS Safety Report 10611336 (Version 3)
Quarter: 2015Q4

REPORT INFORMATION
  Report Type: Spontaneous
  Country: US (occurrence: US)
  Receive Date: 20141126
  Receipt Date: 20151222
  Transmission Date: 20160304
  Serious: Yes (Other)
  Sender: FDA-Public Use
  Company Number: US-TEVA-525288USA

PATIENT
  Age: 38 Year
  Sex: Female
  Weight: 86.26 kg

DRUGS (1)
  1. PARAGARD T 380A [Suspect]
     Active Substance: COPPER
     Indication: CONTRACEPTION
     Route: 015
     Dates: start: 20120507

REACTIONS (5)
  - Emotional distress [Unknown]
  - Device dislocation [Recovered/Resolved]
  - Pain [Unknown]
  - Pregnancy with contraceptive device [Unknown]
  - Live birth [Unknown]

NARRATIVE: CASE EVENT DATE: 20130417
